FAERS Safety Report 4523761-X (Version None)
Quarter: 2004Q4

REPORT INFORMATION
  Report Type: 
  Country: None (occurrence: None)
  Receive Date: 20041119
  Receipt Date: 20040907
  Transmission Date: 20050328
  Serious: No
  Sender: FDA-Public Use
  Company Number: PHEH2004US09621

PATIENT
  Age: 40 Year
  Sex: Female

DRUGS (3)
  1. ZELNORM [Suspect]
     Indication: IRRITABLE BOWEL SYNDROME
     Dosage: 6 MG, BID, ORAL
     Route: 048
     Dates: start: 20040904
  2. SYNTHROID [Concomitant]
  3. CELEXA [Concomitant]

REACTIONS (2)
  - ABDOMINAL DISTENSION [None]
  - CONDITION AGGRAVATED [None]
